FAERS Safety Report 16817044 (Version 2)
Quarter: 2019Q3

REPORT INFORMATION
  Report Type: Spontaneous
  Country: GB (occurrence: GB)
  Receive Date: 20190917
  Receipt Date: 20190917
  Transmission Date: 20191005
  Serious: Yes (Other)
  Sender: FDA-Public Use
  Company Number: GB-PFIZER INC-2019381774

PATIENT
  Age: 77 Year
  Sex: Male

DRUGS (6)
  1. ATORVASTATIN [Suspect]
     Active Substance: ATORVASTATIN
     Indication: VON WILLEBRAND^S DISEASE
     Dosage: UNK (HIGH DOSE)
     Route: 065
  2. HUMAN FACTOR VIII [Suspect]
     Active Substance: ANTIHEMOPHILIC FACTOR HUMAN
     Indication: GASTROINTESTINAL HAEMORRHAGE
  3. TAMOXIFEN [Suspect]
     Active Substance: TAMOXIFEN
     Indication: VON WILLEBRAND^S DISEASE
     Dosage: UNK (HIGH DOSE)
     Route: 065
  4. OCTREOTIDE ACETATE. [Suspect]
     Active Substance: OCTREOTIDE ACETATE
     Indication: VON WILLEBRAND^S DISEASE
     Dosage: UNK (HIGH DOSE)
     Route: 065
  5. HUMAN FACTOR VIII [Suspect]
     Active Substance: ANTIHEMOPHILIC FACTOR HUMAN
     Indication: PROPHYLAXIS
     Dosage: UNK (HIGH DOSE)
     Route: 065
  6. HUMAN FACTOR VIII [Suspect]
     Active Substance: ANTIHEMOPHILIC FACTOR HUMAN
     Indication: VON WILLEBRAND^S DISEASE

REACTIONS (2)
  - Drug ineffective for unapproved indication [Unknown]
  - Off label use [Unknown]
